FAERS Safety Report 8425570-8 (Version None)
Quarter: 2012Q2

REPORT INFORMATION
  Report Type: 
  Country: None (occurrence: None)
  Receive Date: 20120605
  Receipt Date: 20120605
  Transmission Date: 20120825
  Serious: No
  Sender: FDA-Public Use
  Company Number: None

PATIENT
  Age: 50 Year
  Sex: Male
  Weight: 77.1115 kg

DRUGS (3)
  1. CYMBALTA [Suspect]
     Indication: FIBROMYALGIA
     Dosage: 60 MG 1 X DAY MOUTH 1 DAY BETWEEN DATES
     Route: 048
  2. CYMBALTA [Suspect]
     Indication: FIBROMYALGIA
     Dosage: 30 MG 1 X DAY MOUTH
     Route: 048
     Dates: start: 20120301
  3. CYMBALTA [Suspect]
     Indication: FIBROMYALGIA
     Dosage: 30 MG 1 X DAY MOUTH
     Route: 048
     Dates: start: 20120210

REACTIONS (6)
  - AGITATION [None]
  - SUICIDAL IDEATION [None]
  - PANIC ATTACK [None]
  - DEPRESSION [None]
  - RESTLESSNESS [None]
  - ANXIETY [None]
